FAERS Safety Report 6073869-5 (Version None)
Quarter: 2009Q1

REPORT INFORMATION
  Report Type: 
  Country: None (occurrence: None)
  Receive Date: 20090211
  Receipt Date: 20090128
  Transmission Date: 20090719
  Serious: Yes (Hospitalization)
  Sender: FDA-Public Use
  Company Number: JP-PFIZER INC-2008069062

PATIENT

DRUGS (3)
  1. SUNITINIB MALATE [Suspect]
     Dosage: 50 MG, 1X/DAY
     Route: 048
     Dates: start: 20080726, end: 20081028
  2. PARIET [Concomitant]
     Route: 048
  3. CALBLOCK [Concomitant]
     Route: 048
     Dates: start: 20080802, end: 20080813

REACTIONS (2)
  - DIARRHOEA [None]
  - MALAISE [None]
